FAERS Safety Report 16292442 (Version 1)
Quarter: 2019Q2

REPORT INFORMATION
  Report Type: Spontaneous
  Country: IN (occurrence: IN)
  Receive Date: 20190509
  Receipt Date: 20190509
  Transmission Date: 20190711
  Serious: Yes (Death)
  Sender: FDA-Public Use
  Company Number: IN-FRESENIUS KABI-FK201905281

PATIENT
  Age: 4 Year
  Sex: Male
  Weight: 13 kg

DRUGS (5)
  1. GLYCERYL TRINITRATE [Suspect]
     Active Substance: NITROGLYCERIN
     Indication: PULMONARY HYPERTENSIVE CRISIS
     Dosage: 2.5 UG/KG/MINUTE
     Route: 050
  2. VASOPRESSIN INJECTION (MANUFACTURER UNKNOWN) [Suspect]
     Active Substance: VASOPRESSIN
     Indication: PULMONARY HYPERTENSIVE CRISIS
     Dosage: 0.2 UNITS/MINUTE
     Route: 065
  3. MILRINONE (MANUFACTURER UNKOWN) [Suspect]
     Active Substance: MILRINONE
     Indication: PULMONARY HYPERTENSIVE CRISIS
     Route: 050
  4. EPINEPHRINE. [Suspect]
     Active Substance: EPINEPHRINE
     Indication: PULMONARY HYPERTENSIVE CRISIS
     Dosage: 0.1 UG/KG/MIN
     Route: 042
  5. SILDENAFIL. [Suspect]
     Active Substance: SILDENAFIL
     Indication: PULMONARY HYPERTENSIVE CRISIS
     Dosage: 0.05 MG/KG/H
     Route: 042

REACTIONS (2)
  - Pulmonary hypertensive crisis [Fatal]
  - Product use issue [Fatal]
